FAERS Safety Report 5003590-3 (Version None)
Quarter: 2006Q2

REPORT INFORMATION
  Report Type: 
  Country: None (occurrence: None)
  Receive Date: 20060511
  Receipt Date: 20060428
  Transmission Date: 20061013
  Serious: Yes (Other)
  Sender: FDA-Public Use
  Company Number: 2006057960

PATIENT
  Age: 8 Year
  Sex: Male

DRUGS (1)
  1. DOXORUBICIN HCL [Suspect]
     Indication: BURKITT'S LYMPHOMA

REACTIONS (6)
  - CARDIAC FAILURE [None]
  - CARDIAC FIBRILLATION [None]
  - CARDIOTOXICITY [None]
  - CONGESTIVE CARDIOMYOPATHY [None]
  - PERITONEAL DIALYSIS [None]
  - RENAL FAILURE [None]
